FAERS Safety Report 5223879-2 (Version None)
Quarter: 2007Q1

REPORT INFORMATION
  Report Type: 
  Country: None (occurrence: None)
  Receive Date: 20070130
  Receipt Date: 20070122
  Transmission Date: 20070707
  Serious: Yes (Hospitalization, Disabling, Other)
  Sender: FDA-Public Use
  Company Number: CO-AVENTIS-200710698GDDC

PATIENT
  Sex: Male
  Weight: 52 kg

DRUGS (3)
  1. GLIMEPIRIDE [Suspect]
     Route: 048
     Dates: start: 20060401, end: 20061023
  2. SIMVASTATIN [Suspect]
     Route: 048
     Dates: start: 20060310
  3. UNKNOWN DRUG [Suspect]
     Route: 048
     Dates: start: 20060310, end: 20061023

REACTIONS (4)
  - EMBOLISM [None]
  - LIVER FUNCTION TEST ABNORMAL [None]
  - PHARMACEUTICAL PRODUCT COMPLAINT [None]
  - RASH [None]
